FAERS Safety Report 24706695 (Version 1)
Quarter: 2024Q4

REPORT INFORMATION
  Report Type: Spontaneous
  Country: JP (occurrence: JP)
  Receive Date: 20241206
  Receipt Date: 20241206
  Transmission Date: 20250115
  Serious: Yes (Hospitalization, Other)
  Sender: SETON PHARMACEUTICALS
  Company Number: JP-SETONPHARMA-2024SETLIT00008

PATIENT
  Age: 8 Year
  Sex: Female

DRUGS (5)
  1. PREDNISOLONE [Suspect]
     Active Substance: PREDNISOLONE
     Indication: B precursor type acute leukaemia
  2. PREDNISOLONE [Suspect]
     Active Substance: PREDNISOLONE
  3. PREDNISOLONE [Suspect]
     Active Substance: PREDNISOLONE
  4. PIPERACILLIN [Concomitant]
     Active Substance: PIPERACILLIN
     Indication: Pyrexia
  5. MEROPENEM [Concomitant]
     Active Substance: MEROPENEM

REACTIONS (1)
  - Haemophagocytic lymphohistiocytosis [Recovered/Resolved]
